FAERS Safety Report 4397265-1 (Version None)
Quarter: 2004Q2

REPORT INFORMATION
  Report Type: 
  Country: None (occurrence: None)
  Receive Date: 20040621
  Receipt Date: 20040223
  Transmission Date: 20050107
  Serious: Yes (Death)
  Sender: FDA-Public Use
  Company Number: USA-2004-0013290

PATIENT
  Age: 20 Year
  Sex: Male
  Weight: 72.6 kg

DRUGS (3)
  1. OXYCODONE HCL [Suspect]
  2. ETHANOL (ETHANOL) [Suspect]
  3. CAFFEINE (CAFFEINE) [Suspect]

REACTIONS (1)
  - ACCIDENTAL OVERDOSE [None]
